FAERS Safety Report 11158733 (Version 1)
Quarter: 2015Q2

REPORT INFORMATION
  Report Type: Spontaneous
  Country: US (occurrence: US)
  Receive Date: 20150603
  Receipt Date: 20150603
  Transmission Date: 20150821
  Serious: No
  Sender: FDA-Public Use
  Company Number: US-PFIZER INC-2015182920

PATIENT
  Age: 48 Year
  Sex: Male
  Weight: 47.62 kg

DRUGS (2)
  1. VIAGRA [Suspect]
     Active Substance: SILDENAFIL CITRATE
     Indication: ERECTILE DYSFUNCTION
     Dosage: UNK (BREAKING 100MG TABLET IN HALF)
  2. CIALIS [Suspect]
     Active Substance: TADALAFIL
     Dosage: UNK

REACTIONS (4)
  - Stress [Unknown]
  - Drug ineffective [Unknown]
  - Weight decreased [Unknown]
  - Painful erection [Unknown]
